FAERS Safety Report 12952408 (Version 1)
Quarter: 2016Q4

REPORT INFORMATION
  Report Type: Spontaneous
  Country: TW (occurrence: TW)
  Receive Date: 20161117
  Receipt Date: 20161117
  Transmission Date: 20170207
  Serious: Yes (Other)
  Sender: FDA-Public Use
  Company Number: TW-IMPAX LABORATORIES, INC-2016-IPXL-01533

PATIENT
  Age: 18 Year
  Sex: Male
  Weight: 90 kg

DRUGS (3)
  1. DANTROLENE SODIUM. [Suspect]
     Active Substance: DANTROLENE SODIUM
     Indication: NEUROLEPTIC MALIGNANT SYNDROME
     Dosage: 100 MG, EVERY 12 HOURS
     Route: 042
  2. VALPROIC ACID. [Concomitant]
     Active Substance: VALPROIC ACID
     Indication: BIPOLAR I DISORDER
     Dosage: 1000 MG, DAILY
     Route: 065
  3. SULPRIDE [Concomitant]
     Active Substance: SULPIRIDE
     Indication: BIPOLAR I DISORDER
     Dosage: 600 MG, DAILY
     Route: 065

REACTIONS (1)
  - Embolism venous [Recovering/Resolving]
